FAERS Safety Report 8761769 (Version 1)
Quarter: 2012Q4

REPORT INFORMATION
  Report Type: Spontaneous
  Country: US (occurrence: None)
  Receive Date: 20120830
  Receipt Date: 20120830
  Transmission Date: 20130627
  Serious: Yes (Hospitalization)
  Sender: FDA-Public Use
  Company Number: None

PATIENT
  Age: 84 Year
  Sex: Male

DRUGS (1)
  1. TARCEVA [Suspect]
     Indication: LUNG NEOPLASM MALIGNANT
     Dosage: 150mg by mouth once daily
     Route: 048
     Dates: start: 20120722, end: 20120802

REACTIONS (4)
  - Rash [None]
  - Pleural effusion [None]
  - Chest discomfort [None]
  - Pain [None]
